FAERS Safety Report 4788796-0 (Version None)
Quarter: 2005Q4

REPORT INFORMATION
  Report Type: 
  Country: None (occurrence: None)
  Receive Date: 20051004
  Receipt Date: 20050921
  Transmission Date: 20060501
  Serious: Yes (Hospitalization, Other)
  Sender: FDA-Public Use
  Company Number: HQWYE614623SEP05

PATIENT
  Age: 57 Year
  Sex: Male

DRUGS (4)
  1. RAPAMUNE [Suspect]
     Indication: PROPHYLAXIS AGAINST TRANSPLANT REJECTION
     Dosage: 3 MG 1X PER 1 DAY, ORAL
     Route: 048
     Dates: start: 20050308, end: 20050920
  2. FENOFIBRATE [Concomitant]
  3. PROTONIX [Concomitant]
  4. MYCOPHENOLATE MOFETIL (MYCOPHENOLATE MOFETIL) [Concomitant]

REACTIONS (3)
  - AORTIC THROMBOSIS [None]
  - ILIAC ARTERY THROMBOSIS [None]
  - RENAL ARTERY THROMBOSIS [None]
